FAERS Safety Report 10157705 (Version 1)
Quarter: 2014Q2

REPORT INFORMATION
  Report Type: Spontaneous
  Country: US (occurrence: US)
  Receive Date: 20140507
  Receipt Date: 20140507
  Transmission Date: 20141212
  Serious: Yes (Other)
  Sender: FDA-Public Use
  Company Number: PHHY2014US052608

PATIENT
  Age: 63 Year
  Sex: Male

DRUGS (2)
  1. VANCOMYCIN [Suspect]
     Indication: CRYPTOCOCCUS TEST POSITIVE
  2. VANCOMYCIN [Suspect]
     Indication: COLITIS

REACTIONS (8)
  - Neutrophilic dermatosis [Recovering/Resolving]
  - Rash [Recovering/Resolving]
  - Burning sensation [Recovering/Resolving]
  - Blister [Recovering/Resolving]
  - Skin oedema [Recovering/Resolving]
  - Erythema [Recovering/Resolving]
  - Papule [Recovering/Resolving]
  - Skin plaque [Recovering/Resolving]
